FAERS Safety Report 10077806 (Version 1)
Quarter: 2014Q2

REPORT INFORMATION
  Report Type: Report from Study
  Country: MX (occurrence: MX)
  Receive Date: 20140414
  Receipt Date: 20140414
  Transmission Date: 20141212
  Serious: Yes (Other)
  Sender: FDA-Public Use
  Company Number: PHHY2014MX045396

PATIENT
  Age: 75 Year
  Sex: Female
  Weight: 41 kg

DRUGS (5)
  1. CO-DIOVAN [Suspect]
     Indication: HYPERTENSION
     Dosage: 1 TABLET (160/25 MG) DAILY
     Route: 048
     Dates: start: 200908
  2. CO-DIOVAN [Suspect]
     Dosage: 0.5 TABLET (160/25 MG) DAILY
     Route: 048
  3. ASPIRIN PROTECT [Concomitant]
     Indication: ANTICOAGULANT THERAPY
     Dosage: 1 TABLET (100 MG), UNK
  4. NORFENON [Concomitant]
     Indication: ARRHYTHMIA
     Dosage: 1 DF (150 MG), UNK
     Dates: start: 201305
  5. INDERALICI [Concomitant]
     Indication: ARRHYTHMIA
     Dosage: 1 TABLET (10 MG), UNK
     Dates: start: 2012

REACTIONS (4)
  - Weight decreased [Not Recovered/Not Resolved]
  - Depression [Not Recovered/Not Resolved]
  - Drug prescribing error [Unknown]
  - Wrong technique in drug usage process [Not Recovered/Not Resolved]
